FAERS Safety Report 4810546-X (Version None)
Quarter: 2005Q4

REPORT INFORMATION
  Report Type: 
  Country: None (occurrence: None)
  Receive Date: 20051025
  Receipt Date: 20051025
  Transmission Date: 20060501
  Serious: No
  Sender: FDA-Public Use
  Company Number: None

PATIENT

DRUGS (1)
  1. CREST WHITNING STRIPS (CARBAMIDE PEROXIDE) [Suspect]
     Route: 048
     Dates: start: 20050129, end: 20050211

REACTIONS (4)
  - PARAESTHESIA [None]
  - SENSITIVITY OF TEETH [None]
  - TOOTH DISORDER [None]
  - TOOTHACHE [None]
